FAERS Safety Report 24372973 (Version 6)
Quarter: 2025Q2

REPORT INFORMATION
  Report Type: Report from Study
  Country: US (occurrence: US)
  Receive Date: 20240927
  Receipt Date: 20250624
  Transmission Date: 20250717
  Serious: Yes (Other)
  Sender: SUNOVION
  Company Number: US-SUMITOMO PHARMA SWITZERLAND GMBH-2024SPA003032

PATIENT

DRUGS (3)
  1. ORGOVYX [Suspect]
     Active Substance: RELUGOLIX
     Indication: Prostate cancer
     Dosage: 360 MG, SINGLE
     Route: 048
     Dates: start: 20240905, end: 20240905
  2. ORGOVYX [Suspect]
     Active Substance: RELUGOLIX
     Dosage: 120 MG, QD
     Route: 048
     Dates: start: 20240906
  3. XTANDI [Concomitant]
     Active Substance: ENZALUTAMIDE
     Indication: Prostate cancer
     Dosage: 160 MG, QD
     Route: 065
     Dates: start: 20240905

REACTIONS (10)
  - Hernia repair [Unknown]
  - Localised infection [Unknown]
  - Onycholysis [Unknown]
  - Inguinal hernia [Unknown]
  - Hernia pain [Unknown]
  - Thyroid disorder [Unknown]
  - Prostatic specific antigen increased [Unknown]
  - Night sweats [Unknown]
  - Hot flush [Not Recovered/Not Resolved]
  - Fatigue [Unknown]
